FAERS Safety Report 25606265 (Version 1)
Quarter: 2025Q3

REPORT INFORMATION
  Report Type: Other
  Country: JO (occurrence: JO)
  Receive Date: 20250725
  Receipt Date: 20250725
  Transmission Date: 20251020
  Serious: Yes (Hospitalization, Other)
  Sender: ANI
  Company Number: JO-ANIPHARMA-023722

PATIENT
  Age: 20 Year
  Sex: Female

DRUGS (10)
  1. RANITIDINE [Suspect]
     Active Substance: RANITIDINE
     Indication: Endocarditis
  2. CEFTRIAXONE [Concomitant]
     Active Substance: CEFTRIAXONE
     Indication: Endocarditis
  3. VANCOMYCIN [Concomitant]
     Active Substance: VANCOMYCIN
     Indication: Endocarditis
  4. GENTAMICIN [Concomitant]
     Active Substance: GENTAMICIN
     Indication: Endocarditis
  5. ASPIRIN [Concomitant]
     Active Substance: ASPIRIN
     Indication: Endocarditis
  6. FUROSEMIDE [Concomitant]
     Active Substance: FUROSEMIDE
     Indication: Urine output decreased
  7. METRONIDAZOLE [Concomitant]
     Active Substance: METRONIDAZOLE
     Indication: Diarrhoea
  8. NYSTATIN [Concomitant]
     Active Substance: NYSTATIN
     Indication: Tongue fungal infection
  9. IMIPENEM [Concomitant]
     Active Substance: IMIPENEM
     Indication: Endocarditis
  10. METRONIDAZOLE [Concomitant]
     Active Substance: METRONIDAZOLE
     Indication: Diarrhoea

REACTIONS (1)
  - Neutropenia [Unknown]
